FAERS Safety Report 14802022 (Version 1)
Quarter: 2018Q2

REPORT INFORMATION
  Report Type: Spontaneous
  Country: US (occurrence: US)
  Receive Date: 20180424
  Receipt Date: 20180424
  Transmission Date: 20180711
  Serious: Yes (Other)
  Sender: FDA-Public Use
  Company Number: US-NAPPMUNDI-USA-2017-0141918

PATIENT
  Sex: Male

DRUGS (7)
  1. OXYCODONE HYDROCHLORIDE (SIMILAR TO NDA 22-272) [Suspect]
     Active Substance: OXYCODONE HYDROCHLORIDE
     Indication: NEURALGIA
     Dosage: UNK
     Route: 048
     Dates: start: 1991, end: 201601
  2. OXYCODONE HYDROCHLORIDE (SIMILAR TO NDA 22-272) [Suspect]
     Active Substance: OXYCODONE HYDROCHLORIDE
     Indication: PAIN
  3. HYDROCODONE BITARTRATE (SIMILAR TO NDA 206627) [Concomitant]
     Active Substance: HYDROCODONE BITARTRATE
     Indication: PAIN
  4. HYDROCODONE BITARTRATE (SIMILAR TO NDA 206627) [Concomitant]
     Active Substance: HYDROCODONE BITARTRATE
     Indication: NEURALGIA
     Dosage: UNK
     Route: 048
     Dates: start: 1991, end: 201601
  5. MS CONTIN [Concomitant]
     Active Substance: MORPHINE SULFATE
     Indication: NEURALGIA
     Dosage: UNK
     Route: 048
     Dates: start: 1991, end: 201601
  6. MS CONTIN [Concomitant]
     Active Substance: MORPHINE SULFATE
     Indication: PAIN
  7. XANAX [Concomitant]
     Active Substance: ALPRAZOLAM
     Indication: PRODUCT USED FOR UNKNOWN INDICATION
     Dosage: UNK
     Route: 048
     Dates: start: 1991, end: 201601

REACTIONS (1)
  - Drug dependence [Unknown]
